FAERS Safety Report 9958881 (Version 1)
Quarter: 2014Q1

REPORT INFORMATION
  Report Type: Report from Study
  Country: US (occurrence: US)
  Receive Date: 20140305
  Receipt Date: 20140305
  Transmission Date: 20141002
  Serious: No
  Sender: FDA-Public Use
  Company Number: US-ABBVIE-13P-163-1103367-00

PATIENT
  Age: 47 Year
  Sex: Male
  Weight: 87.62 kg

DRUGS (5)
  1. HUMIRA [Suspect]
     Indication: PSORIASIS
     Route: 058
     Dates: start: 201305, end: 201305
  2. HUMIRA [Suspect]
     Route: 058
     Dates: start: 201305
  3. LISINOPRIL [Concomitant]
     Indication: HYPERTENSION
  4. SIMVASTATIN [Concomitant]
     Indication: BLOOD CHOLESTEROL INCREASED
  5. CLOBETASOL [Concomitant]
     Indication: PSORIASIS

REACTIONS (1)
  - Rash [Not Recovered/Not Resolved]
